FAERS Safety Report 25840333 (Version 1)
Quarter: 2025Q3

REPORT INFORMATION
  Report Type: Spontaneous
  Country: IQ (occurrence: IQ)
  Receive Date: 20250924
  Receipt Date: 20250924
  Transmission Date: 20251020
  Serious: Yes (Life-Threatening, Hospitalization, Other)
  Sender: STRIDES
  Company Number: IQ-STRIDES ARCOLAB LIMITED-2025SP011867

PATIENT
  Age: 28 Year
  Sex: Male

DRUGS (1)
  1. IBUPROFEN [Suspect]
     Active Substance: IBUPROFEN
     Indication: Arthralgia
     Route: 065

REACTIONS (5)
  - Cardiac aneurysm [Recovering/Resolving]
  - Acute myocardial infarction [Recovering/Resolving]
  - Symptom masked [Unknown]
  - Drug abuse [Unknown]
  - Abdominal discomfort [Unknown]
